FAERS Safety Report 6900705-4 (Version None)
Quarter: 2010Q3

REPORT INFORMATION
  Report Type: 
  Country: None (occurrence: None)
  Receive Date: 20100803
  Receipt Date: 20100722
  Transmission Date: 20110219
  Serious: Yes (Death, Hospitalization)
  Sender: FDA-Public Use
  Company Number: BR-ELI_LILLY_AND_COMPANY-BR201006006009

PATIENT
  Sex: Female

DRUGS (6)
  1. FORTEO [Suspect]
     Indication: OSTEOPOROSIS
     Dosage: 20 UG, DAILY (1/D)
     Route: 058
     Dates: start: 20090101
  2. OMEPRAZOLE [Concomitant]
     Indication: ABDOMINAL PAIN UPPER
  3. MANTIDAN [Concomitant]
     Indication: PARKINSON'S DISEASE
  4. NORFLOXACIN [Concomitant]
     Indication: LIVER DISORDER
  5. ALDACTONE [Concomitant]
     Indication: HYPERTENSION
  6. LACTULONA [Concomitant]
     Indication: DYSPEPSIA

REACTIONS (3)
  - CEREBROVASCULAR ACCIDENT [None]
  - FALL [None]
  - MULTI-ORGAN FAILURE [None]
